FAERS Safety Report 5485277-6 (Version None)
Quarter: 2007Q4

REPORT INFORMATION
  Report Type: 
  Country: None (occurrence: None)
  Receive Date: 20071015
  Receipt Date: 20071009
  Transmission Date: 20080405
  Serious: Yes (Other)
  Sender: FDA-Public Use
  Company Number: FR-AVENTIS-200713223FR

PATIENT
  Sex: Female

DRUGS (1)
  1. LOVENOX [Suspect]
     Dates: start: 20071009, end: 20071009

REACTIONS (1)
  - ACCIDENTAL NEEDLE STICK [None]
